FAERS Safety Report 6388729-X (Version None)
Quarter: 2009Q4

REPORT INFORMATION
  Report Type: 
  Country: None (occurrence: None)
  Receive Date: 20091001
  Receipt Date: 20090916
  Transmission Date: 20100525
  Serious: Yes (Other)
  Sender: FDA-Public Use
  Company Number: DSM-2009-01355

PATIENT
  Age: 83 Year
  Sex: Female
  Weight: 61 kg

DRUGS (1)
  1. SEVIKAR (OLMESARTAN MEDOXOMIL/AMLODIPINE BESILATE) (TABLET) [Suspect]
     Indication: HYPERTENSION
     Dosage: 40/5 MG (1 IN 1 D),ORAL
     Route: 048
     Dates: start: 20090421, end: 20090514

REACTIONS (4)
  - HEART RATE IRREGULAR [None]
  - MALAISE [None]
  - UNEVALUABLE EVENT [None]
  - VERTIGO [None]
